FAERS Safety Report 18049209 (Version 3)
Quarter: 2022Q2

REPORT INFORMATION
  Report Type: Spontaneous
  Country: US (occurrence: US)
  Receive Date: 20200721
  Receipt Date: 20220405
  Transmission Date: 20220721
  Serious: No
  Sender: FDA-Public Use
  Company Number: US-PFIZER INC-2020277778

PATIENT
  Age: 56 Year
  Sex: Female

DRUGS (1)
  1. IBRANCE [Suspect]
     Active Substance: PALBOCICLIB
     Indication: Breast cancer female
     Dosage: 125 MG, 1X/DAY (FOR 21 DAYS)
     Route: 048

REACTIONS (4)
  - Product dose omission issue [Unknown]
  - Dizziness [Unknown]
  - White blood cell count decreased [Unknown]
  - Feeling abnormal [Unknown]
